FAERS Safety Report 20655551 (Version 7)
Quarter: 2023Q1

REPORT INFORMATION
  Report Type: Spontaneous
  Country: US (occurrence: US)
  Receive Date: 20220330
  Receipt Date: 20230330
  Transmission Date: 20230418
  Serious: Yes (Other)
  Sender: FDA-Public Use
  Company Number: US-PFIZER INC-202200452306

PATIENT
  Age: 76 Year
  Sex: Female
  Weight: 56.7 kg

DRUGS (7)
  1. VYNDAMAX [Suspect]
     Active Substance: TAFAMIDIS
     Indication: Cardiac amyloidosis
     Dosage: 61 MG, 1X/DAY (61MG TAKE IT IN THE ONCE DAILY EVENING BY MOUTH)
     Route: 048
     Dates: start: 202012
  2. VYNDAMAX [Suspect]
     Active Substance: TAFAMIDIS
     Indication: Amyloidosis senile
     Dosage: 61 MG, 1X/DAY
     Dates: start: 2021, end: 202202
  3. VYNDAMAX [Suspect]
     Active Substance: TAFAMIDIS
     Indication: Cardiac disorder
     Dosage: 61 MG, 1X/DAY
     Route: 048
     Dates: start: 2022
  4. NEBIVOLOL [Concomitant]
     Active Substance: NEBIVOLOL
     Dosage: 20 MG, 1X/DAY
  5. ATORVASTATIN [Concomitant]
     Active Substance: ATORVASTATIN
     Indication: Blood cholesterol abnormal
     Dosage: 20 MG, 1X/DAY
  6. HYDROCHLOROTHIAZIDE [Concomitant]
     Active Substance: HYDROCHLOROTHIAZIDE
     Indication: Diuretic therapy
     Dosage: 12.5 MG, 1X/DAY
  7. FESOTERODINE [Concomitant]
     Active Substance: FESOTERODINE
     Indication: Hypertonic bladder
     Dosage: 4 MG, 1X/DAY

REACTIONS (8)
  - Cholecystitis [Recovering/Resolving]
  - Hepatic infection [Recovering/Resolving]
  - Pancreas infection [Recovering/Resolving]
  - Jaundice [Recovering/Resolving]
  - Fatigue [Unknown]
  - Dyspnoea exertional [Recovering/Resolving]
  - Asthenia [Recovered/Resolved]
  - Dyspnoea [Unknown]

NARRATIVE: CASE EVENT DATE: 20220301
